FAERS Safety Report 4853482-5 (Version None)
Quarter: 2005Q4

REPORT INFORMATION
  Report Type: 
  Country: None (occurrence: None)
  Receive Date: 20051214
  Receipt Date: 20051115
  Transmission Date: 20060501
  Serious: Yes (Hospitalization, Other)
  Sender: FDA-Public Use
  Company Number: PHBS2005ES17060

PATIENT
  Age: 60 Year
  Sex: Male

DRUGS (4)
  1. ZOMETA [Suspect]
     Indication: MULTIPLE MYELOMA
     Dosage: 4 MG, UNK
     Route: 042
     Dates: start: 20020601, end: 20050510
  2. AREDIA [Suspect]
     Indication: MULTIPLE MYELOMA
     Dosage: UNK, QMO
     Dates: start: 19990401, end: 20020601
  3. INTERFERON [Concomitant]
  4. STEROIDS NOS [Concomitant]

REACTIONS (4)
  - INFECTION [None]
  - OSTEONECROSIS [None]
  - SURGERY [None]
  - TOOTH DISORDER [None]
